FAERS Safety Report 7216238-4 (Version None)
Quarter: 2011Q1

REPORT INFORMATION
  Report Type: 
  Country: None (occurrence: None)
  Receive Date: 20110105
  Receipt Date: 20110105
  Transmission Date: 20110831
  Serious: Yes (Life-Threatening, Hospitalization)
  Sender: FDA-Public Use
  Company Number: None

PATIENT
  Sex: Female
  Weight: 65.7716 kg

DRUGS (1)
  1. TRAVATAN Z [Suspect]
     Indication: GLAUCOMA
     Dosage: 1 DROP EACH EYE EACH EVENING
     Route: 047
     Dates: start: 20101013, end: 20101102

REACTIONS (6)
  - HEADACHE [None]
  - DIZZINESS [None]
  - WALKING AID USER [None]
  - BALANCE DISORDER [None]
  - PRODUCT QUALITY ISSUE [None]
  - FATIGUE [None]
